FAERS Safety Report 6145949-7 (Version None)
Quarter: 2009Q2

REPORT INFORMATION
  Report Type: 
  Country: None (occurrence: None)
  Receive Date: 20090406
  Receipt Date: 20090406
  Transmission Date: 20091009
  Serious: Yes (Life-Threatening, Other)
  Sender: FDA-Public Use
  Company Number: None

PATIENT
  Age: 65 Year
  Sex: Female
  Weight: 58.514 kg

DRUGS (1)
  1. CLINDAMYCIN HCL [Suspect]
     Indication: ENDODONTIC PROCEDURE
     Dosage: 1 CAP. Q 6 HRS PO
     Route: 048
     Dates: start: 20070813, end: 20070820

REACTIONS (4)
  - CLOSTRIDIAL INFECTION [None]
  - GASTRIC ULCER HELICOBACTER [None]
  - HAEMATOCHEZIA [None]
  - MUCOUS STOOLS [None]
